FAERS Safety Report 7985807-6 (Version None)
Quarter: 2011Q4

REPORT INFORMATION
  Report Type: 
  Country: None (occurrence: None)
  Receive Date: 20111216
  Receipt Date: 20111208
  Transmission Date: 20120403
  Serious: Yes (Hospitalization)
  Sender: FDA-Public Use
  Company Number: SE-ABBOTT-11P-150-0879106-00

PATIENT
  Sex: Male

DRUGS (2)
  1. HUMIRA [Suspect]
     Indication: COLITIS MICROSCOPIC
     Dosage: BASELINE
     Route: 058
     Dates: start: 20101123, end: 20101123
  2. HUMIRA [Suspect]
     Dosage: WEEK 2
     Dates: start: 20101207, end: 20101207

REACTIONS (5)
  - DIARRHOEA [None]
  - VOMITING [None]
  - HYPOKALAEMIA [None]
  - ABDOMINAL PAIN [None]
  - NAUSEA [None]
